FAERS Safety Report 8179577-9 (Version None)
Quarter: 2012Q1

REPORT INFORMATION
  Report Type: 
  Country: None (occurrence: None)
  Receive Date: 20120229
  Receipt Date: 20120229
  Transmission Date: 20120608
  Serious: No
  Sender: FDA-Public Use
  Company Number: None

PATIENT
  Sex: Female
  Weight: 49.8957 kg

DRUGS (1)
  1. FELODIPINE [Suspect]
     Indication: HYPERTENSION
     Dosage: 2.5 MG 1 X DAILY ORAL
     Route: 048
     Dates: start: 20070101

REACTIONS (5)
  - MOBILITY DECREASED [None]
  - HYPOAESTHESIA [None]
  - DIZZINESS [None]
  - CONSTIPATION [None]
  - PARAESTHESIA [None]
